FAERS Safety Report 11970760 (Version 2)
Quarter: 2016Q1

REPORT INFORMATION
  Report Type: Spontaneous
  Country: US (occurrence: US)
  Receive Date: 20160128
  Receipt Date: 20160201
  Transmission Date: 20160526
  Serious: Yes (Death)
  Sender: FDA-Public Use
  Company Number: US-BAYER-2016-010930

PATIENT
  Sex: Female

DRUGS (1)
  1. CAMPHO-PHENIQUE ANTISEPTIC LIQUID [Suspect]
     Active Substance: CAMPHORATED PHENOL
     Indication: INJURY
     Dosage: UNK

REACTIONS (1)
  - Death [Fatal]
